FAERS Safety Report 8651197 (Version 8)
Quarter: 2015Q3

REPORT INFORMATION
  Report Type: Spontaneous
  Country: BR (occurrence: BR)
  Receive Date: 20120705
  Receipt Date: 20150715
  Transmission Date: 20151125
  Serious: Yes (Other)
  Sender: FDA-Public Use
  Company Number: BR-PFIZER INC-2012091545

PATIENT
  Age: 65 Year
  Sex: Female
  Weight: 46.5 kg

DRUGS (14)
  1. OMEPRAZOLE. [Concomitant]
     Active Substance: OMEPRAZOLE
     Dosage: 2 DF, UNK WHILE FASTING
  2. XALATAN [Suspect]
     Active Substance: LATANOPROST
     Dosage: UNK
  3. ALENIA [Concomitant]
     Active Substance: BUDESONIDE\FORMOTEROL FUMARATE
     Dosage: 2 DF, 2X/DAY
     Dates: start: 2008
  4. XALATAN [Suspect]
     Active Substance: LATANOPROST
     Dosage: 1 DROP EACH EYE, DAILY
     Route: 047
     Dates: start: 201501
  5. XALATAN [Suspect]
     Active Substance: LATANOPROST
     Dosage: 1 GTT, 1 DROP IN EACH EYE EVERY NIGHT
     Dates: start: 2010
  6. LATANOPROST. [Suspect]
     Active Substance: LATANOPROST
     Dosage: UNK
  7. LOSARTAN POTASSIUM. [Concomitant]
     Active Substance: LOSARTAN POTASSIUM
     Dosage: UNK, 2X/DAY
  8. ALENDRONATE SODIUM. [Concomitant]
     Active Substance: ALENDRONATE SODIUM
     Dosage: 70 MG, WEEKLY
  9. CALCIUM [Concomitant]
     Active Substance: CALCIUM
     Dosage: 500 MG, 1X/DAY
  10. XALATAN [Suspect]
     Active Substance: LATANOPROST
     Indication: INTRAOCULAR PRESSURE INCREASED
     Dosage: ONE GTT EACH EYE, DAILY
     Route: 047
     Dates: start: 2013
  11. PERIDONA [Concomitant]
     Dosage: UNK, 3X/DAY BEFORE MEALS
  12. XALATAN [Suspect]
     Active Substance: LATANOPROST
     Indication: GLAUCOMA
     Dosage: 1 DROP EACH EYE, 1X/DAY
     Route: 047
     Dates: start: 20120407
  13. LATANOPROST. [Suspect]
     Active Substance: LATANOPROST
     Dosage: UNK
     Route: 047
  14. SIMVASTATIN. [Concomitant]
     Active Substance: SIMVASTATIN
     Dosage: 20 MG, 1X/DAY AT NIGHT

REACTIONS (14)
  - Chest pain [Recovered/Resolved]
  - Eye pain [Unknown]
  - Intraocular pressure fluctuation [Unknown]
  - Visual acuity reduced [Unknown]
  - Product dropper issue [Unknown]
  - Allergic cough [Recovered/Resolved]
  - Drug dose omission [Unknown]
  - Vision blurred [Recovered/Resolved]
  - Pain in extremity [Recovered/Resolved]
  - Incorrect dose administered [Not Recovered/Not Resolved]
  - Eye irritation [Unknown]
  - Headache [Not Recovered/Not Resolved]
  - Myalgia [Unknown]
  - Fatigue [Unknown]

NARRATIVE: CASE EVENT DATE: 2012
